FAERS Safety Report 9548660 (Version 1)
Quarter: 2013Q3

REPORT INFORMATION
  Report Type: Spontaneous
  Country: US (occurrence: None)
  Receive Date: 20130923
  Receipt Date: 20130923
  Transmission Date: 20140515
  Serious: Yes (Life-Threatening, Hospitalization, Disabling, Other)
  Sender: FDA-Public Use
  Company Number: None

PATIENT
  Age: 54 Year
  Sex: Female
  Weight: 73.94 kg

DRUGS (1)
  1. GADOLINIUM [Suspect]

REACTIONS (4)
  - Nausea [None]
  - Sleep disorder [None]
  - Hyperhidrosis [None]
  - Temperature intolerance [None]
